FAERS Safety Report 8558947-0 (Version None)
Quarter: 2012Q3

REPORT INFORMATION
  Report Type: 
  Country: None (occurrence: None)
  Receive Date: 20120802
  Receipt Date: 20120723
  Transmission Date: 20120928
  Serious: Yes (Other)
  Sender: FDA-Public Use
  Company Number: BR-AMGEN-BRASP2012047275

PATIENT
  Age: 66 Year
  Sex: Female
  Weight: 100 kg

DRUGS (5)
  1. OMEPRAZOLE [Concomitant]
     Indication: GASTRIC DISORDER
     Dosage: UNK
  2. ARAVA [Concomitant]
     Indication: RHEUMATOID ARTHRITIS
     Dosage: 20MG DAILY
  3. DEFLANIL [Concomitant]
     Indication: RHEUMATOID ARTHRITIS
     Dosage: 7.5MG DAILY
  4. ENBREL [Suspect]
     Indication: RHEUMATOID ARTHRITIS
     Dosage: 50 MG, ONCE WEEKLY
     Route: 058
  5. LOSARTAN POTASSIUM [Concomitant]
     Indication: BLOOD PRESSURE INCREASED
     Dosage: 50 MG, 2X/DAY

REACTIONS (6)
  - COUGH [None]
  - TONGUE DISORDER [None]
  - URINARY TRACT INFECTION [None]
  - LUNG DISORDER [None]
  - RETCHING [None]
  - DRUG HYPERSENSITIVITY [None]
